FAERS Safety Report 6112775-4 (Version None)
Quarter: 2009Q1

REPORT INFORMATION
  Report Type: 
  Country: None (occurrence: None)
  Receive Date: 20090312
  Receipt Date: 20090310
  Transmission Date: 20090719
  Serious: Yes (Life-Threatening, Other)
  Sender: FDA-Public Use
  Company Number: AU-ASTRAZENECA-2009AP00863

PATIENT
  Age: 58 Year
  Sex: Male

DRUGS (6)
  1. CRESTOR [Suspect]
     Indication: BLOOD CHOLESTEROL INCREASED
     Route: 048
     Dates: start: 20081106
  2. CRESTOR [Suspect]
     Route: 048
     Dates: start: 20090125
  3. CRESTOR [Suspect]
     Route: 048
  4. COVERSYL PLUS [Concomitant]
  5. SERETIDE [Concomitant]
  6. VENTOLIN [Concomitant]

REACTIONS (2)
  - INSOMNIA [None]
  - LOSS OF CONSCIOUSNESS [None]
